FAERS Safety Report 20656838 (Version 1)
Quarter: 2022Q1

REPORT INFORMATION
  Report Type: Spontaneous
  Country: NL (occurrence: NL)
  Receive Date: 20220331
  Receipt Date: 20220331
  Transmission Date: 20220424
  Serious: Yes (Hospitalization)
  Sender: FDA-Public Use
  Company Number: None

PATIENT
  Age: 74 Year
  Sex: Male
  Weight: 74 kg

DRUGS (6)
  1. CIPROFLOXACIN [Suspect]
     Active Substance: CIPROFLOXACIN
     Indication: Prostatitis
     Dosage: 1000 MILLIGRAM DAILY; 2 X PER DAY 1 TABLET (500 MG); DURATION: 7 DAYS; CIPROFLOXACINE TABLET 500MG /
     Dates: start: 20220211, end: 20220218
  2. ACETAMINOPHEN [Concomitant]
     Active Substance: ACETAMINOPHEN
     Dosage: THERAPY START AND END DATE: ASKU; PARACETAMOL TABLET 500MG / BRAND NAME NOT SPECIFIED
  3. METFORMIN HYDROCHLORIDE [Concomitant]
     Active Substance: METFORMIN HYDROCHLORIDE
     Dosage: THERAPY START AND END DATE: ASKU; METFORMINE TABLET  1000MG / BRAND NAME NOT SPECIFIED
  4. METFORMIN HYDROCHLORIDE [Concomitant]
     Active Substance: METFORMIN HYDROCHLORIDE
     Dosage: THERAPY START AND END DATE: ASKU; METFORMINE TABLET  500MG / BRAND NAME NOT SPECIFIED
  5. AMLODIPINE [Concomitant]
     Active Substance: AMLODIPINE BESYLATE
     Dosage: THERAPY START AND END DATE: ASKU; AMLODIPINE TABLET 5MG / BRAND NAME NOT SPECIFIED
  6. LISINOPRIL [Concomitant]
     Active Substance: LISINOPRIL
     Dosage: THERAPY START AND END DATE: ASKU; LISINOPRIL TABLET 10MG / BRAND NAME NOT SPECIFIED

REACTIONS (5)
  - Myalgia [Not Recovered/Not Resolved]
  - Arthralgia [Not Recovered/Not Resolved]
  - Malaise [Unknown]
  - Limb discomfort [Unknown]
  - Pyrexia [Unknown]

NARRATIVE: CASE EVENT DATE: 20220212
